FAERS Safety Report 12991178 (Version 1)
Quarter: 2016Q4

REPORT INFORMATION
  Report Type: Spontaneous
  Country: US (occurrence: US)
  Receive Date: 20161201
  Receipt Date: 20161201
  Transmission Date: 20170207
  Serious: No
  Sender: FDA-Public Use
  Company Number: US-PURDUE-USA-2016-0134839

PATIENT
  Sex: Female
  Weight: 95.24 kg

DRUGS (1)
  1. OXYCODONE/ ACETAMINOPHEN TABLETS [Suspect]
     Active Substance: ACETAMINOPHEN\OXYCODONE HYDROCHLORIDE
     Indication: PAIN
     Dosage: UNK (7.5/325 MG), Q6H PRN
     Route: 048
     Dates: start: 201610, end: 201610

REACTIONS (4)
  - Feeling abnormal [Unknown]
  - Drug effect decreased [Unknown]
  - Somnolence [Unknown]
  - Fatigue [Unknown]
